FAERS Safety Report 7549931-4 (Version None)
Quarter: 2011Q2

REPORT INFORMATION
  Report Type: 
  Country: None (occurrence: None)
  Receive Date: 20110615
  Receipt Date: 20110608
  Transmission Date: 20111010
  Serious: Yes (Other)
  Sender: FDA-Public Use
  Company Number: PHHY2011DK49819

PATIENT
  Sex: Male
  Weight: 77.6 kg

DRUGS (7)
  1. DIOVAN [Concomitant]
     Indication: HYPERTENSION
     Dates: start: 20000101
  2. ALLOPURINOL [Suspect]
     Dosage: 200 MG, QD
     Dates: start: 20110124
  3. ALLOPURINOL [Suspect]
     Indication: PODAGRA
     Dates: start: 20110107
  4. METOPROLOL TARTRATE [Concomitant]
     Indication: HYPERTENSION
     Dates: start: 20000101
  5. TIMOSAN [Concomitant]
     Indication: GLAUCOMA
     Dates: start: 19760101
  6. ALLOPURINOL [Suspect]
     Dosage: 100 MG, QD
     Dates: start: 20110127
  7. XALATAN [Concomitant]
     Indication: GLAUCOMA
     Dates: start: 19760101

REACTIONS (2)
  - INTRAOCULAR PRESSURE INCREASED [None]
  - CATARACT [None]
